FAERS Safety Report 20213331 (Version 1)
Quarter: 2021Q4

REPORT INFORMATION
  Report Type: Report from Study
  Country: US (occurrence: US)
  Receive Date: 20211221
  Receipt Date: 20211221
  Transmission Date: 20220303
  Serious: Yes (Other)
  Sender: FDA-Public Use
  Company Number: US-UCBSA-2021058395

PATIENT
  Sex: Female

DRUGS (1)
  1. CERTOLIZUMAB PEGOL [Suspect]
     Active Substance: CERTOLIZUMAB PEGOL
     Indication: Product used for unknown indication
     Dosage: UNK
     Dates: start: 2021, end: 2021

REACTIONS (3)
  - Trigeminal nerve disorder [Recovering/Resolving]
  - Neuroprosthesis implantation [Recovering/Resolving]
  - Medical device implantation [Recovering/Resolving]
